FAERS Safety Report 18591150 (Version 1)
Quarter: 2020Q4

REPORT INFORMATION
  Report Type: Spontaneous
  Country: US (occurrence: US)
  Receive Date: 20201208
  Receipt Date: 20201208
  Transmission Date: 20210114
  Serious: No
  Sender: FDA-Public Use
  Company Number: US-ASTRAZENECA-2020SF57458

PATIENT
  Sex: Female
  Weight: 74.8 kg

DRUGS (1)
  1. PULMICORT FLEXHALER [Suspect]
     Active Substance: BUDESONIDE
     Indication: COVID-19
     Dosage: UNKNOWN
     Route: 055
     Dates: start: 202006

REACTIONS (3)
  - Candida infection [Recovered/Resolved]
  - Device issue [Unknown]
  - Device use issue [Unknown]
